FAERS Safety Report 18055889 (Version 1)
Quarter: 2020Q3

REPORT INFORMATION
  Report Type: Spontaneous
  Country: US (occurrence: US)
  Receive Date: 20200722
  Receipt Date: 20200722
  Transmission Date: 20201103
  Serious: Yes (Hospitalization)
  Sender: FDA-Public Use
  Company Number: US-ELI_LILLY_AND_COMPANY-US202007004690

PATIENT
  Sex: Male

DRUGS (1)
  1. HUMALOG [Suspect]
     Active Substance: INSULIN LISPRO
     Indication: DIABETES MELLITUS
     Dosage: 50 U, TID (MAX 50 U ON SLIDING SCALE)
     Route: 058
     Dates: start: 2017

REACTIONS (6)
  - Arthralgia [Unknown]
  - Procedural vomiting [Unknown]
  - Hip fracture [Unknown]
  - Procedural vomiting [Unknown]
  - Bone disorder [Unknown]
  - Hyperglycaemia [Unknown]

NARRATIVE: CASE EVENT DATE: 2017
